FAERS Safety Report 8379383-6 (Version None)
Quarter: 2012Q2

REPORT INFORMATION
  Report Type: 
  Country: None (occurrence: None)
  Receive Date: 20120523
  Receipt Date: 20120517
  Transmission Date: 20120825
  Serious: Yes (Hospitalization)
  Sender: FDA-Public Use
  Company Number: US-BAYER-201023037NA

PATIENT
  Age: 41 Year
  Sex: Female
  Weight: 65.76 kg

DRUGS (17)
  1. OXYCODONE HCL AND ACETAMINOPHEN [Concomitant]
  2. HYDROCODONE BITARTRATE AND ACETAMINOPHEN [Concomitant]
  3. PREVACID [Concomitant]
  4. OVCON-35 [Concomitant]
     Dosage: UNK
     Dates: start: 20040326
  5. ZITHROMAX [Concomitant]
     Dosage: 250 MG, UNK
  6. METRONIDAZOLE [Concomitant]
  7. XANAX [Concomitant]
     Dosage: UNK UNK, AS NEEDED
  8. YASMIN [Suspect]
     Indication: HORMONE REPLACEMENT THERAPY
     Dosage: UNK
     Route: 048
     Dates: start: 20040101
  9. EFFEXOR XR [Concomitant]
     Dosage: UNK
  10. PROMETHAZINE [Concomitant]
  11. WELLBUTRIN XL [Concomitant]
  12. DEXAMETHASONE [Concomitant]
     Dosage: 1.5 MG, UNK
  13. ACETAMINOPHEN AND TRAMADOL HCL [Concomitant]
  14. TETRACYCLINE [Concomitant]
  15. ALPRAZOLAM [Concomitant]
  16. ULTRACET [Concomitant]
  17. ZOVIA 1/35E-21 [Concomitant]
     Dosage: UNK
     Dates: start: 20040415

REACTIONS (2)
  - DEEP VEIN THROMBOSIS [None]
  - PULMONARY EMBOLISM [None]
